FAERS Safety Report 11110870 (Version 2)
Quarter: 2015Q2

REPORT INFORMATION
  Report Type: Report from Study
  Country: None (occurrence: JP)
  Receive Date: 20150513
  Receipt Date: 20150527
  Transmission Date: 20150821
  Serious: Yes (Hospitalization)
  Sender: FDA-Public Use
  Company Number: JP-EISAI MEDICAL RESEARCH-E7080-00877-CLI-JP

PATIENT
  Age: 62 Year
  Sex: Male
  Weight: 69 kg

DRUGS (11)
  1. LEVOTHYROXINE SODIUM HYDRATE [Concomitant]
     Indication: THYROIDECTOMY
     Route: 048
     Dates: start: 20090706
  2. LOXOPROFEN [Concomitant]
     Active Substance: LOXOPROFEN
     Indication: MUSCULOSKELETAL STIFFNESS
     Route: 048
     Dates: start: 20120612
  3. REBAMIPIDE [Concomitant]
     Active Substance: REBAMIPIDE
     Indication: GASTRITIS PROPHYLAXIS
     Route: 048
     Dates: start: 20120612
  4. CEFTERAM PIVOXIL [Concomitant]
     Active Substance: CEFTERAM PIVOXIL
     Indication: PERIODONTITIS
     Route: 048
     Dates: start: 20120623
  5. HEPARINOID [Concomitant]
     Active Substance: CHONDROITIN SULFATE (BOVINE)
     Indication: PALMAR-PLANTAR ERYTHRODYSAESTHESIA SYNDROME
     Dates: start: 20120711
  6. CETRAXATE HYDROCHLORIDE [Concomitant]
     Active Substance: CETRAXATE HYDROCHLORIDE
     Indication: PERIODONTITIS
     Route: 048
     Dates: start: 20120623
  7. LENVATINIB [Suspect]
     Active Substance: LENVATINIB
     Indication: THYROID CANCER
     Route: 048
     Dates: start: 20120529, end: 20120823
  8. LENVATINIB [Suspect]
     Active Substance: LENVATINIB
     Route: 048
     Dates: start: 20120824, end: 20150425
  9. VALSARTAN. [Concomitant]
     Active Substance: VALSARTAN
     Indication: HYPERTENSION
     Route: 048
     Dates: start: 20120426
  10. PABRON [Concomitant]
     Indication: RHINITIS
     Route: 048
     Dates: start: 2002
  11. BENIDIPINE [Concomitant]
     Active Substance: BENIDIPINE
     Indication: HYPERTENSION
     Route: 048
     Dates: start: 20120501

REACTIONS (2)
  - Angina unstable [Recovered/Resolved]
  - Anaphylactic reaction [Recovered/Resolved]

NARRATIVE: CASE EVENT DATE: 20120719
